FAERS Safety Report 7701342-4 (Version None)
Quarter: 2011Q3

REPORT INFORMATION
  Report Type: 
  Country: None (occurrence: None)
  Receive Date: 20110822
  Receipt Date: 20110815
  Transmission Date: 20111222
  Serious: Yes (Death, Hospitalization, Other)
  Sender: FDA-Public Use
  Company Number: US-ELI_LILLY_AND_COMPANY-US201104007583

PATIENT
  Sex: Female
  Weight: 51.6 kg

DRUGS (6)
  1. GEMZAR [Suspect]
     Dosage: 1800 MG, UNKNOWN
     Route: 042
     Dates: start: 20101111
  2. GEMZAR [Suspect]
     Dosage: 1800 MG, UNKNOWN
     Route: 042
  3. REGLAN [Concomitant]
     Dosage: UNK, UNKNOWN
     Route: 065
  4. SPIRONOLACTONE [Concomitant]
     Dosage: UNK, UNKNOWN
     Route: 065
  5. LASIX [Concomitant]
     Dosage: UNK, UNKNOWN
     Route: 065
  6. NEXIUM [Concomitant]
     Dosage: UNK, UNKNOWN
     Route: 065

REACTIONS (2)
  - NEOPLASM PROGRESSION [None]
  - COLON OPERATION [None]
